FAERS Safety Report 6980461-4 (Version None)
Quarter: 2010Q3

REPORT INFORMATION
  Report Type: 
  Country: None (occurrence: None)
  Receive Date: 20100914
  Receipt Date: 20100902
  Transmission Date: 20110219
  Serious: Yes (Other)
  Sender: FDA-Public Use
  Company Number: US-PFIZER INC-2010103596

PATIENT
  Sex: Male
  Weight: 67.12 kg

DRUGS (4)
  1. TOVIAZ [Suspect]
     Indication: HYPERTONIC BLADDER
     Dosage: 4 MG, 1X/DAY
     Route: 048
     Dates: start: 20100805, end: 20100831
  2. SIMVASTATIN [Concomitant]
     Indication: BLOOD CHOLESTEROL INCREASED
     Dosage: UNK
  3. DOXAZOSIN [Concomitant]
     Dosage: UNK
  4. FINASTERIDE [Concomitant]
     Dosage: UNK

REACTIONS (4)
  - BLOOD CHOLESTEROL ABNORMAL [None]
  - DEPRESSION [None]
  - DYSKINESIA [None]
  - MIGRAINE [None]
